FAERS Safety Report 11929706 (Version 2)
Quarter: 2016Q1

REPORT INFORMATION
  Report Type: Spontaneous
  Country: US (occurrence: US)
  Receive Date: 20160120
  Receipt Date: 20160225
  Transmission Date: 20160526
  Serious: No
  Sender: FDA-Public Use
  Company Number: US-MYLANLABS-2015M1011657

PATIENT
  Sex: Male
  Weight: 92.97 kg

DRUGS (4)
  1. SOTALOL. [Suspect]
     Active Substance: SOTALOL
     Dosage: 120 MG, BID
     Dates: start: 2015, end: 2015
  2. METOPROLOL TARTRATE TABLETS USP [Suspect]
     Active Substance: METOPROLOL TARTRATE
     Indication: OFF LABEL USE
  3. METOPROLOL TARTRATE TABLETS USP [Suspect]
     Active Substance: METOPROLOL TARTRATE
     Indication: ATRIAL FIBRILLATION
     Dosage: 25 MG, BID
  4. DILTIAZEM [Suspect]
     Active Substance: DILTIAZEM
     Dosage: 180 MG, QD
     Dates: start: 2015, end: 2015

REACTIONS (2)
  - Urticaria [Not Recovered/Not Resolved]
  - Reaction to drug excipients [Not Recovered/Not Resolved]
